FAERS Safety Report 8317764-7 (Version None)
Quarter: 2012Q2

REPORT INFORMATION
  Report Type: 
  Country: None (occurrence: None)
  Receive Date: 20120427
  Receipt Date: 20120417
  Transmission Date: 20120825
  Serious: Yes (Hospitalization)
  Sender: FDA-Public Use
  Company Number: US-COVIDIEN/TYCO HEALTHCARE/MALLINCKRODT-T201201470

PATIENT
  Age: 73 Year
  Sex: Female

DRUGS (2)
  1. SODIUM IODIDE I 131 [Suspect]
     Indication: HYPERTHYROIDISM
     Dosage: UNK, SIX YEARS PRIOR TO SURGERY
  2. SODIUM IODIDE I 131 [Suspect]
     Dosage: UNK, 1.5 YEARS PRIOR TO SURGERY

REACTIONS (2)
  - PARATHYROID TUMOUR BENIGN [None]
  - TREATMENT FAILURE [None]
